FAERS Safety Report 4520473-3 (Version None)
Quarter: 2004Q4

REPORT INFORMATION
  Report Type: 
  Country: None (occurrence: None)
  Receive Date: 20041203
  Receipt Date: 20041025
  Transmission Date: 20050328
  Serious: Yes (Hospitalization, Disabling)
  Sender: FDA-Public Use
  Company Number: STA-AE-04-MTX-517

PATIENT
  Age: 49 Year
  Sex: Female

DRUGS (2)
  1. METHOTREXATE [Suspect]
     Indication: RHEUMATOID ARTHRITIS
     Dosage: 7.5 MG, ORAL
     Route: 048
     Dates: start: 20031114, end: 20031128
  2. ROFECOXIB [Concomitant]

REACTIONS (4)
  - CONDITION AGGRAVATED [None]
  - HEPATIC CIRRHOSIS [None]
  - HEPATITIS C [None]
  - RHEUMATOID ARTHRITIS [None]
